FAERS Safety Report 11208522 (Version 1)
Quarter: 2015Q2

REPORT INFORMATION
  Report Type: Other
  Country: GB (occurrence: GB)
  Receive Date: 20150622
  Receipt Date: 20150622
  Transmission Date: 20150821
  Serious: Yes (Other)
  Sender: FDA-Public Use
  Company Number: GB-PERRIGO-15GB005920

PATIENT
  Age: 48 Year
  Sex: Female
  Weight: 63.5 kg

DRUGS (2)
  1. CETIRIZINE HYDROCHLORIDE 16208/0066 10 MG [Suspect]
     Active Substance: CETIRIZINE HYDROCHLORIDE
     Indication: PRURITUS
     Dosage: 10 MG, QD
     Route: 048
     Dates: start: 20150403, end: 20150519
  2. FERROUS SULFATE [Concomitant]
     Active Substance: FERROUS SULFATE\FERROUS SULFATE, DRIED
     Dosage: UNK
     Route: 065

REACTIONS (2)
  - Somnolence [Recovering/Resolving]
  - Migraine [Unknown]
